FAERS Safety Report 5414355-2 (Version None)
Quarter: 2007Q3

REPORT INFORMATION
  Report Type: 
  Country: None (occurrence: None)
  Receive Date: 20070713
  Receipt Date: 20061206
  Transmission Date: 20080115
  Serious: Yes (Hospitalization, Other)
  Sender: FDA-Public Use
  Company Number: US-JNJFOC-20060806800

PATIENT
  Age: 32 Year
  Sex: Female
  Weight: 56.246 kg

DRUGS (4)
  1. ORTHO EVRA [Suspect]
     Indication: DRUG USE FOR UNKNOWN INDICATION
     Dosage: TRANSDERMAL
     Route: 062
     Dates: start: 20040101, end: 20040201
  2. ORTHO TRI-CYCLEN [Suspect]
     Indication: DRUG USE FOR UNKNOWN INDICATION
     Dosage: ORAL
     Route: 048
     Dates: start: 20040201
  3. FLAGYL [Concomitant]
  4. TYLENOL WITH COEINE (ACETAMINOPHEN / CODEINE) [Concomitant]

REACTIONS (4)
  - MENORRHAGIA [None]
  - PREMENSTRUAL SYNDROME [None]
  - PULMONARY EMBOLISM [None]
  - VENOUS THROMBOSIS [None]
